FAERS Safety Report 23498034 (Version 2)
Quarter: 2024Q1

REPORT INFORMATION
  Report Type: Spontaneous
  Country: US (occurrence: NL)
  Receive Date: 20240207
  Receipt Date: 20240225
  Transmission Date: 20240410
  Serious: Yes (Hospitalization)
  Sender: FDA-Public Use
  Company Number: US-BAYER-2024A018696

PATIENT
  Age: 58 Year
  Sex: Male
  Weight: 116 kg

DRUGS (7)
  1. XARELTO [Suspect]
     Active Substance: RIVAROXABAN
     Indication: Product used for unknown indication
     Dosage: UNK
     Route: 048
     Dates: start: 20190303, end: 20230223
  2. SEMAGLUTIDE [Suspect]
     Active Substance: SEMAGLUTIDE
     Indication: Obesity
     Dosage: UNK
     Route: 065
     Dates: start: 20200609, end: 20230209
  3. NADROPARIN [Concomitant]
     Active Substance: NADROPARIN
     Dosage: UNK
     Dates: start: 20230222, end: 20230315
  4. TRANEXAMIC ACID [Concomitant]
     Active Substance: TRANEXAMIC ACID
  5. MAGNESIUM HYDROXIDE [Concomitant]
     Active Substance: MAGNESIUM HYDROXIDE
  6. PANTOPRAZOLE [Concomitant]
     Active Substance: PANTOPRAZOLE
  7. ACENOCOUMAROL [Concomitant]
     Active Substance: ACENOCOUMAROL

REACTIONS (2)
  - Post procedural haemorrhage [Unknown]
  - Metabolic surgery [Unknown]

NARRATIVE: CASE EVENT DATE: 20230222
